FAERS Safety Report 9380451 (Version 4)
Quarter: 2014Q2

REPORT INFORMATION
  Report Type: Spontaneous
  Country: FR (occurrence: None)
  Receive Date: 20130628
  Receipt Date: 20140611
  Transmission Date: 20141212
  Serious: Yes (Death, Hospitalization, Other)
  Sender: FDA-Public Use
  Company Number: 2013000143

PATIENT
  Age: 76 Year
  Sex: Male

DRUGS (10)
  1. ACEON [Suspect]
     Indication: HYPERTENSION
     Route: 048
     Dates: start: 201306, end: 20130612
  2. SPIRIVA [Suspect]
     Indication: CHRONIC OBSTRUCTIVE PULMONARY DISEASE
     Route: 048
     Dates: end: 20130612
  3. METFORMIN HYDROCHLORIDE [Suspect]
     Indication: TYPE 2 DIABETES MELLITUS
     Route: 048
     Dates: end: 20130612
  4. CARDENSIEL [Suspect]
     Indication: CARDIAC FAILURE
     Dates: end: 20130612
  5. DIFFU K [Suspect]
     Indication: HYPOKALAEMIA
     Route: 048
  6. PREVISCAN [Suspect]
     Indication: PRODUCT USED FOR UNKNOWN INDICATION
     Route: 048
     Dates: end: 20130612
  7. FUROSEMIDE [Suspect]
     Indication: HYPERTENSION
     Route: 048
     Dates: end: 20130612
  8. SYMBICORT [Suspect]
     Indication: PRODUCT USED FOR UNKNOWN INDICATION
     Dates: end: 201306
  9. TAVANIC [Suspect]
     Indication: CHRONIC OBSTRUCTIVE PULMONARY DISEASE
     Route: 048
     Dates: start: 201306, end: 201306
  10. AUGMENTIN BD [Suspect]
     Indication: CHRONIC OBSTRUCTIVE PULMONARY DISEASE
     Route: 048
     Dates: start: 201306, end: 201306

REACTIONS (22)
  - Renal failure acute [None]
  - Lactic acidosis [None]
  - Bronchitis [None]
  - Dyspnoea [None]
  - Decreased appetite [None]
  - Hyperkalaemia [None]
  - Inflammation [None]
  - Hypotension [None]
  - Nausea [None]
  - Decreased appetite [None]
  - Dialysis [None]
  - Troponin increased [None]
  - International normalised ratio increased [None]
  - Haemodynamic instability [None]
  - Fall [None]
  - Dizziness [None]
  - Chronic obstructive pulmonary disease [None]
  - Emphysema [None]
  - Myocardial ischaemia [None]
  - Inappropriate antidiuretic hormone secretion [None]
  - Cardiac failure [None]
  - Hypothyroidism [None]
